FAERS Safety Report 8991351 (Version 1)
Quarter: 2012Q4

REPORT INFORMATION
  Report Type: 
  Country: GR (occurrence: GR)
  Receive Date: 20121230
  Receipt Date: 20121230
  Transmission Date: 20130627
  Serious: Yes (Hospitalization)
  Sender: FDA-Public Use
  Company Number: GR-US-EMD SERONO, INC.-7134251

PATIENT
  Age: 33 Year
  Sex: Female

DRUGS (3)
  1. REBIF [Suspect]
     Indication: MULTIPLE SCLEROSIS
     Route: 058
     Dates: start: 201105, end: 201204
  2. REBIF [Suspect]
     Dates: start: 20121220
  3. EUTHYROX [Concomitant]
     Indication: PRODUCT USED FOR UNKNOWN INDICATION
     Dates: start: 201101

REACTIONS (3)
  - Cervical incompetence [Recovered/Resolved]
  - Maternal exposure during pregnancy [Recovered/Resolved]
  - Normal newborn [Recovered/Resolved]
